FAERS Safety Report 13397702 (Version 1)
Quarter: 2017Q2

REPORT INFORMATION
  Report Type: Spontaneous
  Country: BR (occurrence: BR)
  Receive Date: 20170403
  Receipt Date: 20170403
  Transmission Date: 20170830
  Serious: Yes (Other)
  Sender: FDA-Public Use
  Company Number: BR-PFIZER INC-2017139345

PATIENT
  Age: 31 Year
  Sex: Female

DRUGS (1)
  1. LYRICA [Suspect]
     Active Substance: PREGABALIN
     Dosage: UNK
     Dates: start: 201609, end: 2016

REACTIONS (5)
  - Intervertebral disc protrusion [Unknown]
  - Gait disturbance [Recovering/Resolving]
  - Spinal pain [Not Recovered/Not Resolved]
  - Intentional product misuse [Unknown]
  - Impaired reasoning [Recovering/Resolving]

NARRATIVE: CASE EVENT DATE: 2016
